FAERS Safety Report 8899901 (Version 1)
Quarter: 2012Q4

REPORT INFORMATION
  Report Type: 
  Country: IN (occurrence: IN)
  Receive Date: 20121109
  Receipt Date: 20121109
  Transmission Date: 20130627
  Serious: Yes (Life-Threatening, Hospitalization, Other)
  Sender: FDA-Public Use
  Company Number: PHHY2012IN102250

PATIENT
  Age: 25 Year
  Sex: Female
  Weight: 35 kg

DRUGS (3)
  1. METHOTREXATE [Suspect]
     Indication: ECTOPIC PREGNANCY
     Dosage: 1 mg/kg, UNK
     Route: 030
  2. LEUCOVORIN [Concomitant]
     Dosage: 5 mg, UNK
     Route: 030
  3. LEUCOVORIN [Concomitant]
     Dosage: 4 mg, Q8H
     Route: 042

REACTIONS (30)
  - Sepsis [Recovered/Resolved]
  - Acinetobacter infection [Recovered/Resolved]
  - Ascites [Recovered/Resolved]
  - Pneumonitis [Recovered/Resolved]
  - Klebsiella infection [Recovered/Resolved]
  - Shock [Recovered/Resolved]
  - Crepitations [Recovered/Resolved]
  - Endocarditis [Recovered/Resolved]
  - Candidiasis [Recovered/Resolved]
  - Bone marrow failure [Recovered/Resolved]
  - Neutropenia [Recovered/Resolved]
  - Anaemia [Recovered/Resolved]
  - Thrombocytopenia [Recovered/Resolved]
  - Pyrexia [Recovered/Resolved]
  - Vomiting [Recovered/Resolved]
  - Conjunctival haemorrhage [Not Recovered/Not Resolved]
  - General physical health deterioration [Recovered/Resolved]
  - Melaena [Recovered/Resolved]
  - Diarrhoea [Recovered/Resolved]
  - Dyspnoea [Recovered/Resolved]
  - Abdominal rigidity [Recovered/Resolved]
  - Abdominal distension [Recovered/Resolved]
  - Localised intraabdominal fluid collection [Recovered/Resolved]
  - Rheumatic heart disease [Recovered/Resolved]
  - Aortic valve incompetence [Recovered/Resolved]
  - Mitral valve stenosis [Recovered/Resolved]
  - Pigmentation disorder [Not Recovered/Not Resolved]
  - Overdose [Unknown]
  - Mouth ulceration [Recovered/Resolved]
  - Exposure during pregnancy [Unknown]
